FAERS Safety Report 16825848 (Version 1)
Quarter: 2019Q3

REPORT INFORMATION
  Report Type: Spontaneous
  Country: GB (occurrence: GB)
  Receive Date: 20190919
  Receipt Date: 20190919
  Transmission Date: 20191005
  Serious: Yes (Other)
  Sender: FDA-Public Use
  Company Number: GB-TEVA-2019-GB-1109672

PATIENT
  Age: 39 Year
  Sex: Female
  Weight: 111 kg

DRUGS (7)
  1. GABAPENTIN. [Concomitant]
     Active Substance: GABAPENTIN
     Dosage: 3 DF
     Dates: start: 20190401
  2. INVITA-D3 [Concomitant]
     Dosage: THE CONTENTS OF ONE AMPOULE TO BE TAKEN BY MOUT...
     Dates: start: 20180322
  3. MEDROXYPROGESTERONE ACETATE. [Concomitant]
     Active Substance: MEDROXYPROGESTERONE ACETATE
     Dosage: USE AS DIRECTED
     Dates: start: 20190813, end: 20190814
  4. NAPROXEN. [Concomitant]
     Active Substance: NAPROXEN
     Dosage: 2 DF
     Dates: start: 20170223
  5. NITROFURANTOIN. [Suspect]
     Active Substance: NITROFURANTOIN
     Dosage: 200 MG
     Dates: start: 20190808, end: 20190811
  6. ERYTHROMYCIN. [Concomitant]
     Active Substance: ERYTHROMYCIN
     Dosage: 4 DF
     Dates: start: 20190709, end: 20190716
  7. LEVOTHYROXINE. [Concomitant]
     Active Substance: LEVOTHYROXINE
     Dosage: 1 DF
     Dates: start: 20170623

REACTIONS (1)
  - Dermatitis allergic [Recovered/Resolved]

NARRATIVE: CASE EVENT DATE: 20190819
